FAERS Safety Report 5140384-2 (Version None)
Quarter: 2006Q4

REPORT INFORMATION
  Report Type: 
  Country: None (occurrence: None)
  Receive Date: 20061031
  Receipt Date: 20061023
  Transmission Date: 20070319
  Serious: Yes (Other)
  Sender: FDA-Public Use
  Company Number: US-ELI_LILLY_AND_COMPANY-US200610004223

PATIENT
  Age: 75 Year
  Sex: Female

DRUGS (1)
  1. FORTEO [Suspect]
     Indication: OSTEOPOROSIS
     Dates: start: 20030501, end: 20051201

REACTIONS (10)
  - BODY HEIGHT DECREASED [None]
  - BONE DENSITY DECREASED [None]
  - CARDIAC ARREST [None]
  - CONDITION AGGRAVATED [None]
  - HEART RATE DECREASED [None]
  - HEART RATE IRREGULAR [None]
  - OXYGEN SATURATION DECREASED [None]
  - PULMONARY FUNCTION TEST DECREASED [None]
  - SPINAL FRACTURE [None]
  - TOTAL LUNG CAPACITY DECREASED [None]
